FAERS Safety Report 5315940-9 (Version None)
Quarter: 2007Q2

REPORT INFORMATION
  Report Type: 
  Country: None (occurrence: None)
  Receive Date: 20070503
  Receipt Date: 20070419
  Transmission Date: 20071010
  Serious: Yes (Hospitalization)
  Sender: FDA-Public Use
  Company Number: JP-ROCHE-438174

PATIENT
  Age: 7 Year
  Sex: Male
  Weight: 27 kg

DRUGS (1)
  1. TAMIFLU [Suspect]
     Dosage: FORM: DRY SYRUP.
     Route: 048
     Dates: start: 20060213, end: 20060213

REACTIONS (1)
  - ABNORMAL BEHAVIOUR [None]
